FAERS Safety Report 24210748 (Version 1)
Quarter: 2024Q3

REPORT INFORMATION
  Report Type: Spontaneous
  Country: IN (occurrence: IN)
  Receive Date: 20240814
  Receipt Date: 20240814
  Transmission Date: 20241017
  Serious: Yes (Other)
  Sender: PERRIGO
  Company Number: IN-PERRIGO-24IN007398

PATIENT
  Age: 28 Year
  Sex: Male

DRUGS (10)
  1. LORATADINE [Suspect]
     Active Substance: LORATADINE
     Indication: Rhinitis
     Dosage: UNKNOWN, UNKNOWN
     Route: 048
  2. LORATADINE [Suspect]
     Active Substance: LORATADINE
     Indication: Pyrexia
  3. CETIRIZINE HYDROCHLORIDE [Suspect]
     Active Substance: CETIRIZINE HYDROCHLORIDE
     Indication: Rhinitis
     Dosage: UNKNOWN, UNKNOWN
     Route: 048
  4. CETIRIZINE HYDROCHLORIDE [Suspect]
     Active Substance: CETIRIZINE HYDROCHLORIDE
     Indication: Pyrexia
  5. LEVOCETIRIZINE DIHYDROCHLORIDE [Suspect]
     Active Substance: LEVOCETIRIZINE DIHYDROCHLORIDE
     Indication: Rhinitis
     Dosage: UNKNOWN, UNKNOWN
     Route: 048
  6. LEVOCETIRIZINE DIHYDROCHLORIDE [Suspect]
     Active Substance: LEVOCETIRIZINE DIHYDROCHLORIDE
     Indication: Pyrexia
  7. FEXOFENADINE HYDROCHLORIDE [Suspect]
     Active Substance: FEXOFENADINE HYDROCHLORIDE
     Indication: Rhinitis
     Dosage: UNKNOWN, UNKNOWN
     Route: 048
  8. FEXOFENADINE HYDROCHLORIDE [Suspect]
     Active Substance: FEXOFENADINE HYDROCHLORIDE
     Indication: Pyrexia
  9. HYDROXYZINE [Suspect]
     Active Substance: HYDROXYZINE HYDROCHLORIDE
     Indication: Rhinitis
     Dosage: UNKNOWN, UNKNOWN
     Route: 048
  10. HYDROXYZINE [Suspect]
     Active Substance: HYDROXYZINE HYDROCHLORIDE
     Indication: Pyrexia

REACTIONS (1)
  - Generalised bullous fixed drug eruption [Unknown]
